FAERS Safety Report 24624745 (Version 2)
Quarter: 2025Q3

REPORT INFORMATION
  Report Type: Spontaneous
  Country: PR (occurrence: PR)
  Receive Date: 20241115
  Receipt Date: 20250725
  Transmission Date: 20251020
  Serious: Yes (Other)
  Sender: Unknown Manufacturer
  Company Number: PR-Rhythm Pharmaceuticals, Inc.-2024RHM000106

PATIENT
  Age: 38 Year
  Sex: Female

DRUGS (2)
  1. IMCIVREE [Suspect]
     Active Substance: SETMELANOTIDE
     Indication: Laurence-Moon-Bardet-Biedl syndrome
     Dosage: 2 MILLIGRAM, QD
     Route: 058
     Dates: start: 20240219
  2. IMCIVREE [Suspect]
     Active Substance: SETMELANOTIDE
     Dosage: 3 MILLIGRAM, QD (0.3 ML)
     Route: 058
     Dates: end: 20241030

REACTIONS (16)
  - Impaired gastric emptying [Recovered/Resolved]
  - Pyrexia [Recovering/Resolving]
  - Sleep disorder [Unknown]
  - Mood swings [Unknown]
  - Decreased appetite [Unknown]
  - Injection site hypoaesthesia [Recovered/Resolved]
  - Cholelithiasis [Recovered/Resolved]
  - Chills [Recovering/Resolving]
  - Diarrhoea [Not Recovered/Not Resolved]
  - Nausea [Recovered/Resolved]
  - Aggression [Unknown]
  - Injection site nodule [Unknown]
  - Injection site irritation [Not Recovered/Not Resolved]
  - Skin discolouration [Recovered/Resolved]
  - Abdominal pain [Not Recovered/Not Resolved]
  - Vomiting [Not Recovered/Not Resolved]

NARRATIVE: CASE EVENT DATE: 20240219
